FAERS Safety Report 20330740 (Version 1)
Quarter: 2022Q1

REPORT INFORMATION
  Report Type: Spontaneous
  Country: GR (occurrence: GR)
  Receive Date: 20220113
  Receipt Date: 20220113
  Transmission Date: 20220423
  Serious: Yes (Death, Hospitalization, Other)
  Sender: FDA-Public Use
  Company Number: GR-IPCA LABORATORIES LIMITED-IPC-2022-GR-000031

PATIENT

DRUGS (4)
  1. METFORMIN [Suspect]
     Active Substance: METFORMIN HYDROCHLORIDE
     Indication: Type 2 diabetes mellitus
     Dosage: 1000 MILLIGRAM, BID
     Route: 065
  2. OLMESARTAN [Concomitant]
     Active Substance: OLMESARTAN
     Indication: Product used for unknown indication
     Dosage: UNK
     Route: 065
  3. LEVOTHYROXINE [Concomitant]
     Active Substance: LEVOTHYROXINE
     Indication: Product used for unknown indication
     Dosage: 137 MICROGRAM, QD
     Route: 065
  4. INSULIN GLARGINE [Concomitant]
     Active Substance: INSULIN GLARGINE
     Indication: Product used for unknown indication
     Dosage: 16 INTERNATIONAL UNIT (EVERY MORNING)
     Route: 065

REACTIONS (7)
  - Lactic acidosis [Fatal]
  - Acute kidney injury [Fatal]
  - Supraventricular tachycardia [Fatal]
  - Confusional state [Fatal]
  - Hyperkalaemia [Fatal]
  - Haemodynamic instability [Fatal]
  - Respiratory failure [Fatal]
